FAERS Safety Report 5822236-5 (Version None)
Quarter: 2008Q3

REPORT INFORMATION
  Report Type: 
  Country: None (occurrence: None)
  Receive Date: 20080714
  Receipt Date: 20080411
  Transmission Date: 20090109
  Serious: Yes (Other)
  Sender: FDA-Public Use
  Company Number: 558424

PATIENT
  Age: 62 Year
  Sex: Female

DRUGS (1)
  1. BONIVA (1BANDRONIC ACID) [Suspect]
     Indication: OSTEOPOROSIS
     Dosage: 150 MG ORAL
     Route: 048
     Dates: start: 20070801

REACTIONS (1)
  - HYPERTENSION [None]
